FAERS Safety Report 8033045-3 (Version None)
Quarter: 2012Q1

REPORT INFORMATION
  Report Type: 
  Country: None (occurrence: None)
  Receive Date: 20120110
  Receipt Date: 20120105
  Transmission Date: 20120608
  Serious: Yes (Life-Threatening)
  Sender: FDA-Public Use
  Company Number: FR-PFIZER INC-2012002929

PATIENT
  Age: 65 Year
  Sex: Male

DRUGS (6)
  1. CUBICIN [Suspect]
     Dosage: UNK
     Route: 042
     Dates: start: 20110606, end: 20110617
  2. GENTAMICIN [Concomitant]
  3. CANCIDAS [Suspect]
     Dosage: 50 MG
     Route: 042
     Dates: start: 20110606, end: 20110617
  4. PIPERACILLIN/TAZOBACTAM [Suspect]
     Dosage: UNK
     Route: 042
     Dates: start: 20110506, end: 20110606
  5. VANCOMYCIN [Suspect]
     Dosage: 750 UNK, UNK
     Route: 042
     Dates: start: 20110506, end: 20110510
  6. IMIPENEM AND CILASTATIN SODIUM [Suspect]
     Dosage: 750 MG, 3X/DAY
     Route: 042
     Dates: start: 20110606, end: 20110617

REACTIONS (2)
  - COAGULATION FACTOR V LEVEL DECREASED [None]
  - PROTHROMBIN TIME SHORTENED [None]
